FAERS Safety Report 24881852 (Version 1)
Quarter: 2025Q1

REPORT INFORMATION
  Report Type: Spontaneous
  Country: ZA (occurrence: ZA)
  Receive Date: 20250124
  Receipt Date: 20250124
  Transmission Date: 20250409
  Serious: Yes (Hospitalization, Other)
  Sender: AMGEN
  Company Number: ZA-SERVIER-S24017557

PATIENT
  Age: 50 Year
  Sex: Female

DRUGS (30)
  1. IVABRADINE HYDROCHLORIDE [Suspect]
     Active Substance: IVABRADINE HYDROCHLORIDE
     Indication: Angina pectoris
     Dosage: 7.5 MG, BID
     Route: 048
  2. IVABRADINE HYDROCHLORIDE [Suspect]
     Active Substance: IVABRADINE HYDROCHLORIDE
     Dosage: 7.5 MG, BID
     Route: 048
  3. CLOBAZAM [Concomitant]
     Active Substance: CLOBAZAM
     Indication: Anxiety
     Dosage: 5 MG, TID
     Route: 048
  4. Pritor [Concomitant]
     Indication: Hypertension
     Dosage: 20 MG, UNK
     Route: 048
  5. Lipogen [Concomitant]
     Indication: Blood cholesterol
     Dosage: 40 MG, QD
     Route: 048
  6. METFORMIN HYDROCHLORIDE [Concomitant]
     Active Substance: METFORMIN HYDROCHLORIDE
     Indication: Diabetes mellitus
     Dosage: 500 MG, BID
     Route: 048
  7. QUETIAPINE [Concomitant]
     Active Substance: QUETIAPINE
     Indication: Schizophrenia
     Dosage: 400 MG, QD
     Route: 048
  8. QUETIAPINE [Concomitant]
     Active Substance: QUETIAPINE
     Indication: Bipolar disorder
     Dosage: 150 MG, BID
     Route: 048
  9. QUETIAPINE [Concomitant]
     Active Substance: QUETIAPINE
     Dosage: 300 MG, QD
     Route: 048
  10. DULOXETINE HYDROCHLORIDE [Concomitant]
     Active Substance: DULOXETINE HYDROCHLORIDE
     Indication: Depression
     Dosage: 30 MG, QD
     Route: 048
  11. DULOXETINE HYDROCHLORIDE [Concomitant]
     Active Substance: DULOXETINE HYDROCHLORIDE
     Indication: Pain
     Dosage: 60 MG, QD
     Route: 048
  12. LAMOTRIGINE [Concomitant]
     Active Substance: LAMOTRIGINE
     Indication: Epilepsy
     Dosage: 200 MG, QD
     Route: 048
  13. LAMOTRIGINE [Concomitant]
     Active Substance: LAMOTRIGINE
     Dosage: 50 MG, QD
     Route: 048
  14. LYRICA [Concomitant]
     Active Substance: PREGABALIN
     Indication: Epilepsy
     Dosage: 75 MG, QD
     Route: 048
  15. LYRICA [Concomitant]
     Active Substance: PREGABALIN
     Dosage: 25 MG, BID
     Route: 048
  16. ZOLPIDEM [Concomitant]
     Active Substance: ZOLPIDEM TARTRATE
     Indication: Product used for unknown indication
     Dosage: 12.5 MG, QD
     Route: 048
  17. PASRIN [Concomitant]
     Indication: Stress
     Dosage: 10 MG, BID
     Route: 048
  18. LASIX [Concomitant]
     Active Substance: FUROSEMIDE
     Indication: Hypertension
     Dosage: 20 MG, QD
     Route: 048
  19. ASPIRIN [Concomitant]
     Active Substance: ASPIRIN
     Indication: Anticoagulant therapy
     Dosage: 100 MG, QD
     Route: 048
  20. MONTELUKAST SODIUM [Concomitant]
     Active Substance: MONTELUKAST SODIUM
     Indication: Asthma
     Dosage: 10 MG, QD
     Route: 048
  21. DAPAGLIFLOZIN [Concomitant]
     Active Substance: DAPAGLIFLOZIN
     Indication: Diabetes mellitus
     Dosage: 10 MG, QD
     Route: 048
  22. Stilpane [Concomitant]
     Indication: Pain
     Route: 048
  23. INTEFLORA [Concomitant]
     Indication: Product used for unknown indication
     Dosage: 250 MG, BID
     Route: 048
  24. CEFUROXIME [Concomitant]
     Active Substance: CEFUROXIME
     Indication: Product used for unknown indication
     Dosage: 500 MG, BID
     Route: 048
  25. PREDNISONE [Concomitant]
     Active Substance: PREDNISONE
     Indication: Product used for unknown indication
     Dosage: 20 MG, QD
     Route: 048
  26. Buscopan compositum [Concomitant]
     Indication: Product used for unknown indication
     Dosage: 1 DF, TID
     Route: 048
  27. AUGMENTIN [Concomitant]
     Active Substance: AMOXICILLIN\CLAVULANATE POTASSIUM
     Indication: Product used for unknown indication
     Dosage: 1000 MG, BID
     Route: 048
  28. ONDANSETRON HYDROCHLORIDE [Concomitant]
     Active Substance: ONDANSETRON HYDROCHLORIDE
     Indication: Product used for unknown indication
     Dosage: 4 MG, QD
     Route: 060
  29. SULFAMETHOXAZOLE\TRIMETHOPRIM [Concomitant]
     Active Substance: SULFAMETHOXAZOLE\TRIMETHOPRIM
     Indication: Acne
     Dosage: 960 MG, BID
     Route: 048
  30. LIBRAX [Concomitant]
     Active Substance: CHLORDIAZEPOXIDE HYDROCHLORIDE\CLIDINIUM BROMIDE
     Indication: Diverticulitis
     Dosage: 1 DF, TID
     Route: 048

REACTIONS (2)
  - Knee operation [Unknown]
  - Gait inability [Unknown]
